FAERS Safety Report 17215676 (Version 2)
Quarter: 2020Q2

REPORT INFORMATION
  Report Type: Spontaneous
  Country: DE (occurrence: DE)
  Receive Date: 20191230
  Receipt Date: 20200601
  Transmission Date: 20200713
  Serious: Yes (Death, Congenital Anomaly, Other)
  Sender: FDA-Public Use
  Company Number: DE-MYLANLABS-2019M1129504

PATIENT
  Age: 1 Day
  Sex: Male
  Weight: 2.34 kg

DRUGS (13)
  1. BELOC ZOK MITE [Concomitant]
     Active Substance: METOPROLOL SUCCINATE
     Indication: RENAL HYPERTENSION
     Dosage: 70.75 [MG/D (47.5-0-23.75) ]/ SINCE WHEN  PROBABLY THERAPY STARTED EARLIER
     Route: 064
     Dates: start: 20140114, end: 20140114
  2. PARTUSISTEN [Concomitant]
     Active Substance: FENOTEROL
     Indication: TOCOLYSIS
     Dosage: UNK
     Route: 064
     Dates: start: 20140114, end: 20140114
  3. AZATHIOPRINE. [Suspect]
     Active Substance: AZATHIOPRINE
     Indication: PROPHYLAXIS AGAINST TRANSPLANT REJECTION
     Dosage: DAILY DOSE: 100 MG MILLIGRAM(S) EVERY DAY
     Route: 064
     Dates: start: 20130702, end: 20140114
  4. PROGRAF [Suspect]
     Active Substance: TACROLIMUS
     Indication: PROPHYLAXIS AGAINST TRANSPLANT REJECTION
     Dosage: 5.5 MILLIGRAM DAILY; 5.5[MG/D (3-0-2.5 MG/D) / MOTHER SINCE 2007
     Route: 064
     Dates: start: 20130702, end: 20140114
  5. BETAMETHASON                       /00008501/ [Concomitant]
     Active Substance: BETAMETHASONE
     Indication: MATERNAL THERAPY TO ENHANCE FOETAL LUNG MATURITY
     Dosage: IN WEEK 25+3, 25+4 AND AGAIN IN WEEK 28+0
     Route: 064
     Dates: end: 20140114
  6. L-THYROXIN                         /00068002/ [Concomitant]
     Active Substance: LEVOTHYROXINE SODIUM
     Indication: HYPOTHYROIDISM
     Dosage: DAILY DOSE: 25 ?G MICROGRAM(S) EVERY DAY
     Route: 064
     Dates: start: 20130702, end: 20140114
  7. FOLIC ACID. [Concomitant]
     Active Substance: FOLIC ACID
     Indication: PROPHYLAXIS OF NEURAL TUBE DEFECT
     Dosage: 0.6 MILLIGRAM, QD, (DAILY DOSE: 0.6 MG MILLIGRAM(S) EVERY DAY)
     Route: 064
     Dates: start: 20130702, end: 20131217
  8. AMLODIPIN                          /00972401/ [Concomitant]
     Active Substance: AMLODIPINE BESYLATE
     Indication: RENAL HYPERTENSION
     Dosage: UNK, QD, (7.5 MILLIGRAM DAILY; 7.5 [MG/D (2.5-0-5) ])
     Route: 064
  9. METOPROLOL. [Suspect]
     Active Substance: METOPROLOL
     Indication: RENAL HYPERTENSION
     Dosage: 142.5 [MG/D (95-0-47.5) ]/ SINCE 2012. THERAPY PROBABLY ONGOING OR CHANGED TO BELOC ZOK MITE
     Route: 064
     Dates: start: 20130702, end: 20131217
  10. METHYLDOPA. [Suspect]
     Active Substance: METHYLDOPA
     Indication: RENAL HYPERTENSION
     Dosage: DAILY DOSE: 500 MG MILLIGRAM(S) EVERY DAY
     Route: 064
     Dates: start: 20130702, end: 20140114
  11. DEKRISTOL [Concomitant]
     Active Substance: CHOLECALCIFEROL
     Indication: VITAMIN SUPPLEMENTATION
     Dosage: DAILY DOSE: 20000 IU INTERNATIONAL UNIT(S) EVERY WEEK
     Route: 064
     Dates: start: 20130702, end: 20131217
  12. ADALAT [Concomitant]
     Active Substance: NIFEDIPINE
     Indication: TOCOLYSIS
     Dosage: UNK
     Route: 064
  13. AMPICILLIN [Concomitant]
     Active Substance: AMPICILLIN
     Indication: ANTIBIOTIC PROPHYLAXIS
     Dosage: UNK
     Route: 064
     Dates: start: 20140114, end: 20140114

REACTIONS (7)
  - Foetal exposure during pregnancy [Unknown]
  - Large for dates baby [Unknown]
  - Hydrops foetalis [Fatal]
  - Polyhydramnios [Fatal]
  - Neonatal respiratory failure [Fatal]
  - Congenital cystic lung [Fatal]
  - Low birth weight baby [Unknown]

NARRATIVE: CASE EVENT DATE: 20130702
